FAERS Safety Report 21898270 (Version 1)
Quarter: 2023Q1

REPORT INFORMATION
  Report Type: Spontaneous
  Country: US (occurrence: None)
  Receive Date: 20230121
  Receipt Date: 20230121
  Transmission Date: 20230418
  Serious: Yes (Hospitalization)
  Sender: FDA-Public Use
  Company Number: None

PATIENT
  Age: 52 Year
  Sex: Male
  Weight: 97.5 kg

DRUGS (4)
  1. FLUOROURACIL [Suspect]
     Active Substance: FLUOROURACIL
     Dates: end: 20230103
  2. CAMPTOSAR [Suspect]
     Active Substance: IRINOTECAN HYDROCHLORIDE
     Dates: end: 20230103
  3. LEUCOVORIN CALCIUM [Concomitant]
     Active Substance: LEUCOVORIN CALCIUM
     Dates: end: 20230103
  4. ELOXATIN [Suspect]
     Active Substance: OXALIPLATIN
     Dates: end: 20230103

REACTIONS (4)
  - Hypotension [None]
  - Blood creatinine increased [None]
  - Intra-abdominal fluid collection [None]
  - Sepsis [None]

NARRATIVE: CASE EVENT DATE: 20230111
